FAERS Safety Report 9193128 (Version 3)
Quarter: 2013Q2

REPORT INFORMATION
  Report Type: Spontaneous
  Country: US (occurrence: None)
  Receive Date: 20130318
  Receipt Date: 20130507
  Transmission Date: 20140414
  Serious: Yes (Other)
  Sender: FDA-Public Use
  Company Number: 2013034984

PATIENT
  Sex: Female
  Weight: 117.94 kg

DRUGS (31)
  1. PRIVIGEN [Suspect]
     Indication: IMMUNODEFICIENCY COMMON VARIABLE
     Dates: start: 201105, end: 201108
  2. STEROIDS (CORTICOSTEROIDS) [Suspect]
  3. ANTIBIOTICS (ANTIBIOTICS) [Suspect]
  4. NARCOTICS (OPIOIDS) [Suspect]
  5. HCTZ (HYDROCHLOROTHIAZIDE) [Concomitant]
  6. CELEXA (CITALOPRAM HYDROBROMIDE) [Concomitant]
  7. TRAMADOL (TRAMADOL) [Concomitant]
  8. DIPHENHYDRAMINE (DIPHENHYDRAMINE) [Concomitant]
  9. LIDOCAINE/PRILOCAINE (EMLA /00675501/) [Concomitant]
  10. EPI-PEN (EPINEPHRINE) [Concomitant]
  11. CENTRUM (CENTRUM /00554501/) [Concomitant]
  12. VOLTAREN 1% GEL (DICLOFENAC) [Concomitant]
  13. GABAPENTIN (GABAPENTIN) [Concomitant]
  14. FLONASE (FLUTICASONE PROPIONATE) [Concomitant]
  15. VENTOLIN (SALBUTAMOL) [Concomitant]
  16. ASPIRIN (ACETYLSALICYLIC ACID) [Concomitant]
  17. SYMBICORT [Concomitant]
  18. ALPRAZOLAM ALPRAZOLAM) [Concomitant]
  19. LEVOTHYROXINE (LEVOTHYROXINE) [Concomitant]
  20. ALBUTEROL SALBUTAMOL) [Concomitant]
  21. VITAMIN B COMPLEX (CYANOCOBALAMIN) [Concomitant]
  22. ESTER-C (CALCIUM ASCORBATE) [Concomitant]
  23. CALCIUM (CALCIUM) [Concomitant]
  24. TOPAMAX TOPIRAMATE [Concomitant]
  25. ACIPHEX RABEPRAZOLE SODIUM) [Concomitant]
  26. ALEVE (NAPROXEN SODIUM) [Concomitant]
  27. FISH OIL (FISH OIL) [Concomitant]
  28. GLUCOSAMINE (GLUCOSAMINE) [Concomitant]
  29. VITAMIN D3 (COLECALCIFEROL) [Concomitant]
  30. PROZAC (FLUOXETINE HYDROCHLORIDE) [Concomitant]
  31. CYCLOBENZAPRINE (CYCLOBENZAPRINE) [Concomitant]

REACTIONS (6)
  - Cellulitis [None]
  - Fall [None]
  - Accident [None]
  - Blood immunoglobulin G decreased [None]
  - Burning sensation [None]
  - Headache [None]
